FAERS Safety Report 20830352 (Version 1)
Quarter: 2022Q2

REPORT INFORMATION
  Report Type: Spontaneous
  Country: US (occurrence: US)
  Receive Date: 20220514
  Receipt Date: 20220514
  Transmission Date: 20220721
  Serious: No
  Sender: FDA-Public Use
  Company Number: US-BRISTOL-MYERS SQUIBB COMPANY-2022-025281

PATIENT
  Age: 72 Year
  Sex: Female
  Weight: 71.21 kg

DRUGS (5)
  1. REVLIMID [Suspect]
     Active Substance: LENALIDOMIDE
     Indication: Plasma cell myeloma
     Dosage: 14 DAYS AND 7 DAYS OFF
     Route: 048
     Dates: start: 20220329
  2. VELCADE [Concomitant]
     Active Substance: BORTEZOMIB
     Dosage: VELCADE 3.5 MG SDV
  3. VERAPAMIL HCL [Concomitant]
     Active Substance: VERAPAMIL HYDROCHLORIDE
     Indication: Product used for unknown indication
  4. SIMVASTATIN [Concomitant]
     Active Substance: SIMVASTATIN
     Indication: Product used for unknown indication
  5. HYDROCHLOROTHIAZIDE [Concomitant]
     Active Substance: HYDROCHLOROTHIAZIDE
     Indication: Product used for unknown indication

REACTIONS (3)
  - Eye oedema [Not Recovered/Not Resolved]
  - Eye discharge [Not Recovered/Not Resolved]
  - Herpes zoster [Not Recovered/Not Resolved]
